FAERS Safety Report 8826020 (Version 2)
Quarter: 2012Q4

REPORT INFORMATION
  Report Type: 
  Country: IE (occurrence: IE)
  Receive Date: 20121005
  Receipt Date: 20121129
  Transmission Date: 20130627
  Serious: Yes (Other)
  Sender: FDA-Public Use
  Company Number: IE-PFIZER INC-2012244670

PATIENT
  Age: 63 Year
  Sex: Female
  Weight: 70 kg

DRUGS (2)
  1. LIPITOR [Suspect]
     Indication: HYPERLIPIDAEMIA
     Dosage: 20 mg
     Route: 048
  2. HALCION [Concomitant]
     Indication: INSOMNIA
     Dosage: 0.25 mg, Taking it for 5 nights out of 7
     Route: 048

REACTIONS (1)
  - Muscle atrophy [Not Recovered/Not Resolved]
